FAERS Safety Report 10049789 (Version 4)
Quarter: 2014Q3

REPORT INFORMATION
  Report Type: Report from Study
  Country: JP (occurrence: JP)
  Receive Date: 20140401
  Receipt Date: 20140707
  Transmission Date: 20150326
  Serious: Yes (Hospitalization)
  Sender: FDA-Public Use
  Company Number: JP-ROCHE-1369574

PATIENT
  Age: 65 Year
  Sex: Male
  Weight: 68.2 kg

DRUGS (10)
  1. BIO-THREE [Concomitant]
     Active Substance: HERBALS
     Route: 065
     Dates: start: 20140319, end: 20140320
  2. NAFTOPIDIL [Concomitant]
     Active Substance: NAFTOPIDIL
     Route: 065
     Dates: start: 20121221
  3. NAFTOPIDIL [Concomitant]
     Active Substance: NAFTOPIDIL
     Route: 065
     Dates: start: 20130201
  4. BEVACIZUMAB [Suspect]
     Active Substance: BEVACIZUMAB
     Indication: NON-SMALL CELL LUNG CANCER
     Dosage: DATE OF MOST RECENT DOSE PRIOR TO SAE : 27/FEB/2014.
     Route: 050
     Dates: start: 20130725, end: 20140417
  5. TRIMEBUTINE MALEATE [Concomitant]
     Active Substance: TRIMEBUTINE MALEATE
     Route: 065
     Dates: start: 20140319, end: 20140320
  6. PREGABALIN. [Concomitant]
     Active Substance: PREGABALIN
     Route: 065
     Dates: start: 20130226
  7. DOCETAXEL [Suspect]
     Active Substance: DOCETAXEL
     Indication: NON-SMALL CELL LUNG CANCER
     Dosage: DATE OF LAST DOSE PRIOR TO EVENT : 14/NOV/2013
     Route: 042
     Dates: start: 20130905
  8. ESTAZOLAM. [Concomitant]
     Active Substance: ESTAZOLAM
     Route: 065
     Dates: start: 20130107
  9. ATORVASTATIN CALCIUM. [Concomitant]
     Active Substance: ATORVASTATIN CALCIUM
     Route: 065
     Dates: start: 2010
  10. ALOGLIPTIN BENZOATE [Concomitant]
     Active Substance: ALOGLIPTIN BENZOATE
     Route: 065
     Dates: start: 20130106

REACTIONS (1)
  - Prerenal failure [Recovered/Resolved]

NARRATIVE: CASE EVENT DATE: 20140320
